FAERS Safety Report 8991217 (Version 3)
Quarter: 2013Q1

REPORT INFORMATION
  Report Type: Spontaneous
  Country: US (occurrence: None)
  Receive Date: 20121219
  Receipt Date: 20130205
  Transmission Date: 20140127
  Serious: Yes (Other)
  Sender: FDA-Public Use
  Company Number: US-1195608

PATIENT
  Age: 91 Year
  Sex: Male
  Weight: 74.84 kg

DRUGS (13)
  1. NEVANAC [Suspect]
     Indication: EYE INFECTION
     Dosage: OD RIGHT EYE
     Route: 047
     Dates: start: 20120903, end: 20121105
  2. ZANTAC [Concomitant]
  3. FINASTERIDE [Concomitant]
  4. LIPITOR [Concomitant]
  5. ALOE VERA [Concomitant]
  6. COQ10 [Concomitant]
  7. LUTEIN [Concomitant]
  8. FISH [Concomitant]
  9. CALCIUM [Concomitant]
  10. MAGNESIUM [Concomitant]
  11. LOSARTAN [Concomitant]
  12. RANEXA [Concomitant]
  13. TIMOLOL MALEATE 0.5 % OPHTHALMIC SOLUTION [Suspect]
     Indication: GLAUCOMA
     Route: 047

REACTIONS (8)
  - Paraesthesia [None]
  - Blood pressure increased [None]
  - Vision blurred [None]
  - Hallucination, visual [None]
  - Dizziness [None]
  - Feeling hot [None]
  - Visual impairment [None]
  - Macule [None]
